FAERS Safety Report 6529293-1 (Version None)
Quarter: 2010Q1

REPORT INFORMATION
  Report Type: 
  Country: None (occurrence: None)
  Receive Date: 20100107
  Receipt Date: 20091228
  Transmission Date: 20100710
  Serious: Yes (Other)
  Sender: FDA-Public Use
  Company Number: PHEH2009US18433

PATIENT
  Sex: Female

DRUGS (4)
  1. GENTEAL MODERATE LUBRICANT EYE DROPS (NVO) [Suspect]
     Dosage: UNK
     Dates: start: 20091223, end: 20091224
  2. PREDNISOLONE [Concomitant]
  3. ZYMAR [Concomitant]
  4. REFRESH TEARS LUBRICANT [Concomitant]

REACTIONS (6)
  - ABNORMAL SENSATION IN EYE [None]
  - CORNEAL ABRASION [None]
  - EYE DISORDER [None]
  - EYE PAIN [None]
  - VISUAL ACUITY REDUCED [None]
  - VISUAL IMPAIRMENT [None]
